FAERS Safety Report 9241720 (Version 2)
Quarter: 2013Q2

REPORT INFORMATION
  Report Type: Spontaneous
  Country: FR (occurrence: FR)
  Receive Date: 20130419
  Receipt Date: 20130510
  Transmission Date: 20140414
  Serious: Yes (Hospitalization)
  Sender: FDA-Public Use
  Company Number: FR-JNJFOC-20130407801

PATIENT
  Age: 53 Year
  Sex: Female

DRUGS (9)
  1. REMICADE [Suspect]
     Indication: ANKYLOSING SPONDYLITIS
     Route: 042
     Dates: start: 20130128, end: 20130128
  2. REMICADE [Suspect]
     Indication: ANKYLOSING SPONDYLITIS
     Route: 042
     Dates: start: 201209
  3. CEBUTID [Suspect]
     Indication: PRODUCT USED FOR UNKNOWN INDICATION
     Dosage: DOSE: 1 DF
     Route: 048
     Dates: end: 20130308
  4. DICLOFENAC [Concomitant]
     Route: 048
  5. AUGMENTIN [Concomitant]
     Route: 048
     Dates: start: 20130304, end: 20130305
  6. DAFALGAN [Concomitant]
     Route: 048
  7. INEXIUM [Concomitant]
     Route: 048
  8. ALFACALCIDOL [Concomitant]
     Route: 048
  9. LEVOTHYROX [Concomitant]
     Route: 048

REACTIONS (6)
  - Agranulocytosis [Recovered/Resolved]
  - Headache [Recovered/Resolved]
  - Musculoskeletal pain [Recovered/Resolved]
  - Asthenia [Recovered/Resolved]
  - Hyperhidrosis [Recovered/Resolved]
  - Pyrexia [Recovered/Resolved]
